FAERS Safety Report 9189751 (Version 3)
Quarter: 2013Q2

REPORT INFORMATION
  Report Type: Spontaneous
  Country: CN (occurrence: CN)
  Receive Date: 20130326
  Receipt Date: 20130531
  Transmission Date: 20140414
  Serious: Yes (Other)
  Sender: FDA-Public Use
  Company Number: CN-JNJFOC-20130315041

PATIENT
  Sex: 0

DRUGS (1)
  1. TOPIRAMATE [Suspect]
     Indication: EPILEPSY
     Dosage: STARTING DOSE OF 0.625 MG/KG/DAY
     Route: 048

REACTIONS (2)
  - Personality change [Unknown]
  - Mental disorder [Unknown]
